FAERS Safety Report 7703486-X (Version None)
Quarter: 2011Q3

REPORT INFORMATION
  Report Type: 
  Country: None (occurrence: None)
  Receive Date: 20110823
  Receipt Date: 20110818
  Transmission Date: 20111222
  Serious: Yes (Other)
  Sender: FDA-Public Use
  Company Number: IN-PFIZER INC-2011190825

PATIENT
  Age: 22 Year
  Sex: Female

DRUGS (3)
  1. PHENYTOIN [Interacting]
     Dosage: 100MG, 3X/DAY
  2. VANCOMYCIN HCL [Suspect]
     Dosage: 1G, 2X/DAY
  3. DEXAMETHASONE [Concomitant]
     Dosage: 2G, 3X/DAY

REACTIONS (3)
  - STEVENS-JOHNSON SYNDROME [None]
  - RED MAN SYNDROME [None]
  - DRUG INTERACTION [None]
